FAERS Safety Report 6275108-9 (Version None)
Quarter: 2009Q3

REPORT INFORMATION
  Report Type: 
  Country: None (occurrence: None)
  Receive Date: 20090721
  Receipt Date: 20090717
  Transmission Date: 20100115
  Serious: Yes (Life-Threatening, Hospitalization)
  Sender: FDA-Public Use
  Company Number: GB-WYE-G04070509

PATIENT
  Age: 42 Year
  Sex: Male
  Weight: 70 kg

DRUGS (1)
  1. TAZOCIN [Suspect]
     Indication: PSEUDOMONAS INFECTION
     Route: 042
     Dates: start: 20090618, end: 20090707

REACTIONS (3)
  - ANKLE FRACTURE [None]
  - FEBRILE NEUTROPENIA [None]
  - JOINT DISLOCATION [None]
